FAERS Safety Report 11294547 (Version 1)
Quarter: 2015Q2

REPORT INFORMATION
  Report Type: Spontaneous
  Country: US (occurrence: None)
  Receive Date: 20150623
  Receipt Date: 20150623
  Transmission Date: 20150821
  Serious: Yes (Other)
  Sender: FDA-Public Use
  Company Number: RB-69782-2014

PATIENT
  Sex: Female

DRUGS (3)
  1. VICODIN [Concomitant]
     Active Substance: ACETAMINOPHEN\HYDROCODONE BITARTRATE
  2. TEGRETOL [Concomitant]
     Active Substance: CARBAMAZEPINE
  3. DEXTROMETHORPHAN/GUAIFENESIN (1200 MG, 1200 MG) (RB RECKITT BENCKISER)) [Suspect]
     Active Substance: DEXTROMETHORPHAN\GUAIFENESIN
     Indication: FIBROMYALGIA
     Dates: start: 20141013

REACTIONS (5)
  - Drug abuse [None]
  - Hallucination [None]
  - Overdose [None]
  - Constipation [None]
  - Off label use [None]
